FAERS Safety Report 14288815 (Version 1)
Quarter: 2017Q4

REPORT INFORMATION
  Report Type: Spontaneous
  Country: FR (occurrence: FR)
  Receive Date: 20171214
  Receipt Date: 20171214
  Transmission Date: 20180321
  Serious: Yes (Hospitalization)
  Sender: FDA-Public Use
  Company Number: FR-B.I. PHARMACEUTICALS,INC./RIDGEFIELD-2017-12-000092

PATIENT
  Age: 75 Year
  Sex: Male
  Weight: 61 kg

DRUGS (1)
  1. OFEV [Suspect]
     Active Substance: NINTEDANIB
     Indication: COMBINED PULMONARY FIBROSIS AND EMPHYSEMA
     Route: 048
     Dates: start: 201704, end: 201707

REACTIONS (1)
  - Bronchioloalveolar carcinoma [Not Recovered/Not Resolved]

NARRATIVE: CASE EVENT DATE: 20171004
